FAERS Safety Report 5060713-8 (Version None)
Quarter: 2006Q3

REPORT INFORMATION
  Report Type: 
  Country: None (occurrence: None)
  Receive Date: 20060725
  Receipt Date: 20060117
  Transmission Date: 20061208
  Serious: Yes (Life-Threatening, Hospitalization, Other)
  Sender: FDA-Public Use
  Company Number: PHMT2006CA00522

PATIENT
  Age: 75 Year
  Sex: Female

DRUGS (3)
  1. ZYPREXA [Concomitant]
     Dosage: 2.5 TO 7.5 MG DAILY
  2. EXELON [Concomitant]
     Dosage: 1.5 MG, BID
  3. CLOZARIL [Suspect]
     Dosage: 25 MG, QHS
     Route: 048
     Dates: start: 20051223, end: 20051230

REACTIONS (4)
  - APNOEA [None]
  - BLOOD PRESSURE DECREASED [None]
  - PANIC ATTACK [None]
  - TACHYCARDIA [None]
